FAERS Safety Report 21067779 (Version 1)
Quarter: 2022Q3

REPORT INFORMATION
  Report Type: Spontaneous
  Country: CN (occurrence: CN)
  Receive Date: 20220712
  Receipt Date: 20220712
  Transmission Date: 20221026
  Serious: Yes (Other)
  Sender: FDA-Public Use
  Company Number: CN-BRISTOL-MYERS SQUIBB COMPANY-2022-066296

PATIENT
  Age: 31 Year
  Sex: Male
  Weight: 59 kg

DRUGS (3)
  1. BARACLUDE [Suspect]
     Active Substance: ENTECAVIR
     Indication: Pneumonia
     Dosage: REFER TO NARRATIVEINCLUDECLINICAL
     Route: 048
     Dates: start: 20220316, end: 20220325
  2. MEROPENEM [Suspect]
     Active Substance: MEROPENEM
     Indication: Pneumonia
     Route: 041
     Dates: start: 20220316, end: 20220322
  3. CASPOFUNGIN ACETATE [Suspect]
     Active Substance: CASPOFUNGIN ACETATE
     Indication: Pneumonia
     Route: 041
     Dates: start: 20220316, end: 20220322

REACTIONS (2)
  - Myelosuppression [Recovering/Resolving]
  - Intentional product use issue [Unknown]

NARRATIVE: CASE EVENT DATE: 20220317
